FAERS Safety Report 4529709-6 (Version None)
Quarter: 2004Q4

REPORT INFORMATION
  Report Type: 
  Country: None (occurrence: None)
  Receive Date: 20041214
  Receipt Date: 20041202
  Transmission Date: 20050328
  Serious: Yes (Death, Life-Threatening)
  Sender: FDA-Public Use
  Company Number: 04H-163-0282262-00

PATIENT
  Age: 94 Year
  Sex: Male

DRUGS (1)
  1. VANCOMYCIN [Suspect]
     Dosage: 1 GM, GIVEN ONCE OVER TEN MINUTES, INTRAVENOUS BOLUS
     Route: 040
     Dates: start: 20041101, end: 20041101

REACTIONS (5)
  - CARDIAC ARREST [None]
  - DEVICE FAILURE [None]
  - HYPOTENSION [None]
  - MEDICATION ERROR [None]
  - VENTRICULAR FIBRILLATION [None]
